FAERS Safety Report 6248877-1 (Version None)
Quarter: 2009Q2

REPORT INFORMATION
  Report Type: 
  Country: None (occurrence: None)
  Receive Date: 20090629
  Receipt Date: 20090616
  Transmission Date: 20091009
  Serious: Yes (Hospitalization, Other)
  Sender: FDA-Public Use
  Company Number: PHHO2009US07823

PATIENT
  Age: 68 Year
  Sex: Male
  Weight: 187 kg

DRUGS (11)
  1. ALDESLEUKIN C-ALDE+INJ [Suspect]
     Indication: METASTATIC MALIGNANT MELANOMA
     Dosage: 50.4 IU, Q8H
     Route: 042
     Dates: start: 20090610, end: 20090613
  2. ALDESLEUKIN C-ALDE+INJ [Suspect]
     Indication: METASTATIC RENAL CELL CARCINOMA
  3. DEMEROL [Suspect]
  4. SORAFENIB [Concomitant]
  5. SIMVASTATIN [Concomitant]
  6. ASPIRIN [Concomitant]
  7. METFORMIN HCL [Concomitant]
  8. CENTRUM SILVER [Concomitant]
  9. PEPCID [Concomitant]
  10. CLARITIN [Concomitant]
  11. OXYCODONE HCL [Concomitant]

REACTIONS (19)
  - ATRIAL FIBRILLATION [None]
  - CHILLS [None]
  - CONFUSIONAL STATE [None]
  - CONSTIPATION [None]
  - COUGH [None]
  - DELUSION [None]
  - DYSGEUSIA [None]
  - FATIGUE [None]
  - HEART RATE IRREGULAR [None]
  - HYPOTHYROIDISM [None]
  - INFECTION [None]
  - POSTNASAL DRIP [None]
  - PYREXIA [None]
  - RASH [None]
  - SNORING [None]
  - STREPTOCOCCAL BACTERAEMIA [None]
  - TACHYCARDIA [None]
  - THROMBOCYTOPENIA [None]
  - WEIGHT INCREASED [None]
